FAERS Safety Report 16051233 (Version 1)
Quarter: 2019Q1

REPORT INFORMATION
  Report Type: Spontaneous
  Country: US (occurrence: US)
  Receive Date: 20190208
  Receipt Date: 20190208
  Transmission Date: 20190418
  Serious: Yes (Death)
  Sender: FDA-Public Use
  Company Number: None

PATIENT
  Age: 93 Year
  Sex: Female

DRUGS (2)
  1. ENOXAPARIN 60MG/0.6 INJ [Suspect]
     Active Substance: ENOXAPARIN
     Indication: EMBOLISM
     Dosage: ?          OTHER DOSE:60MG/06;?
     Route: 058
     Dates: start: 20190125, end: 20190127
  2. ENOXAPARIN 60MG/0.6 INJ [Suspect]
     Active Substance: ENOXAPARIN
     Indication: THROMBOSIS
     Dosage: ?          OTHER DOSE:60MG/06;?
     Route: 058
     Dates: start: 20190125, end: 20190127

REACTIONS (1)
  - Death [None]

NARRATIVE: CASE EVENT DATE: 20190127
